FAERS Safety Report 19508852 (Version 1)
Quarter: 2021Q3

REPORT INFORMATION
  Report Type: Spontaneous
  Country: GR (occurrence: GR)
  Receive Date: 20210709
  Receipt Date: 20210709
  Transmission Date: 20211014
  Serious: Yes (Hospitalization)
  Sender: FDA-Public Use
  Company Number: GR-JNJFOC-20200318875

PATIENT
  Age: 85 Year
  Sex: Female
  Weight: 55 kg

DRUGS (4)
  1. STELARA [Suspect]
     Active Substance: USTEKINUMAB
     Indication: PRODUCT USED FOR UNKNOWN INDICATION
     Dosage: PATIENT RECEIVED 20 DAYS AT HOME AND FIVE AT THE NURSING HOME
     Route: 065
  2. ALOPERIDIN [Suspect]
     Active Substance: HALOPERIDOL
     Indication: DEMENTIA
     Dosage: 10 DROPS PER DAY
     Route: 048
     Dates: start: 2019
  3. ALOPERIDIN [Suspect]
     Active Substance: HALOPERIDOL
     Dosage: 20 DROPS PER DAY
     Route: 048
  4. SEROQUEL [Concomitant]
     Active Substance: QUETIAPINE FUMARATE
     Dosage: 4 TABLETS
     Route: 065

REACTIONS (7)
  - Dehydration [Unknown]
  - Decreased appetite [Unknown]
  - Somnolence [Unknown]
  - Fatigue [Unknown]
  - Gait disturbance [Unknown]
  - Anal incontinence [Unknown]
  - Sleep disorder [Unknown]
